FAERS Safety Report 11147557 (Version 1)
Quarter: 2015Q2

REPORT INFORMATION
  Report Type: Spontaneous
  Country: DE (occurrence: DE)
  Receive Date: 20150529
  Receipt Date: 20150529
  Transmission Date: 20150821
  Serious: Yes (Other)
  Sender: FDA-Public Use
  Company Number: DE-GE HEALTHCARE MEDICAL DIAGNOSTICS-VISP-PR-1505S-0187

PATIENT
  Age: 48 Year
  Sex: Male
  Weight: 82 kg

DRUGS (4)
  1. VISIPAQUE [Suspect]
     Active Substance: IODIXANOL
     Indication: NIGHT SWEATS
  2. VISIPAQUE [Suspect]
     Active Substance: IODIXANOL
     Indication: PYREXIA
     Route: 042
     Dates: start: 20150520, end: 20150520
  3. VISIPAQUE [Suspect]
     Active Substance: IODIXANOL
     Indication: DIAGNOSTIC PROCEDURE
  4. VISIPAQUE [Suspect]
     Active Substance: IODIXANOL
     Indication: WEIGHT DECREASED

REACTIONS (4)
  - Vomiting [Recovered/Resolved]
  - Rash pruritic [Recovered/Resolved]
  - Angioedema [Recovered/Resolved]
  - Nausea [Recovered/Resolved]

NARRATIVE: CASE EVENT DATE: 20150520
